FAERS Safety Report 13722263 (Version 2)
Quarter: 2017Q3

REPORT INFORMATION
  Report Type: Spontaneous
  Country: US (occurrence: US)
  Receive Date: 20170706
  Receipt Date: 20170807
  Transmission Date: 20171127
  Serious: Yes (Hospitalization)
  Sender: FDA-Public Use
  Company Number: US-BAYER-2017-058839

PATIENT
  Age: 63 Year
  Sex: Female

DRUGS (3)
  1. BETASERON [Suspect]
     Active Substance: INTERFERON BETA-1B
     Indication: MULTIPLE SCLEROSIS
     Dosage: 0.3 MG, UNK
     Dates: start: 201605
  2. GILENYA [Suspect]
     Active Substance: FINGOLIMOD HYDROCHLORIDE
  3. BETASERON [Suspect]
     Active Substance: INTERFERON BETA-1B
     Indication: MULTIPLE SCLEROSIS
     Dosage: 0.3 MG, UNK
     Dates: end: 2017

REACTIONS (6)
  - Pain in extremity [None]
  - Depression [None]
  - Decreased interest [None]
  - Back pain [None]
  - Drug ineffective [None]
  - Injection site pain [None]

NARRATIVE: CASE EVENT DATE: 2017
